FAERS Safety Report 4730250-6 (Version None)
Quarter: 2005Q3

REPORT INFORMATION
  Report Type: 
  Country: None (occurrence: None)
  Receive Date: 20050801
  Receipt Date: 20050422
  Transmission Date: 20060218
  Serious: Yes (Death, Hospitalization)
  Sender: FDA-Public Use
  Company Number: CZ-ROCHE-402644

PATIENT
  Age: 68 Year
  Sex: Female
  Weight: 86 kg

DRUGS (8)
  1. MYCOPHENOLATE MOFETIL [Suspect]
     Route: 048
     Dates: start: 20040225, end: 20041202
  2. DACLIZUMAB [Suspect]
     Route: 042
     Dates: start: 20040224, end: 20040421
  3. CYCLOSPORINE [Suspect]
     Route: 048
     Dates: start: 20041207, end: 20041213
  4. CYCLOSPORINE [Suspect]
     Route: 048
     Dates: start: 20041214, end: 20041225
  5. SIROLIMUS [Suspect]
     Route: 048
     Dates: start: 20040225, end: 20041203
  6. STEROID [Suspect]
     Route: 065
  7. GLUKOS [Concomitant]
     Dates: start: 20041202, end: 20041225
  8. CIPROFLOXACIN [Concomitant]
     Dates: start: 20041207, end: 20041225

REACTIONS (6)
  - CARDIAC FAILURE [None]
  - DEHYDRATION [None]
  - DYSPEPSIA [None]
  - LARGE INTESTINE PERFORATION [None]
  - PERITONITIS [None]
  - SEPSIS [None]
